FAERS Safety Report 7613030-3 (Version None)
Quarter: 2011Q3

REPORT INFORMATION
  Report Type: 
  Country: None (occurrence: None)
  Receive Date: 20110713
  Receipt Date: 20110418
  Transmission Date: 20111222
  Serious: No
  Sender: FDA-Public Use
  Company Number: US-005181

PATIENT
  Sex: Male

DRUGS (1)
  1. DEGARELIX 80 MG [Suspect]
     Indication: PROSTATE CANCER
     Dosage: (80 MG 1X)

REACTIONS (3)
  - INJECTION SITE MASS [None]
  - INJECTION SITE INFECTION [None]
  - INJECTION SITE DISCOLOURATION [None]
